FAERS Safety Report 15654226 (Version 2)
Quarter: 2019Q1

REPORT INFORMATION
  Report Type: Spontaneous
  Country: JP (occurrence: JP)
  Receive Date: 20181125
  Receipt Date: 20190202
  Transmission Date: 20190417
  Serious: Yes (Hospitalization, Other)
  Sender: FDA-Public Use
  Company Number: JP-TEVA-2018-JP-979405

PATIENT
  Age: 76 Year
  Sex: Male

DRUGS (14)
  1. ESOMEPRAZOLE MAGNESIUM. [Concomitant]
     Active Substance: ESOMEPRAZOLE MAGNESIUM
     Indication: GASTROOESOPHAGEAL REFLUX DISEASE
     Dosage: 20 MILLIGRAM DAILY;
     Route: 048
     Dates: start: 20181005
  2. VALACICLOVIR HYDROCHLORIDE [Concomitant]
     Active Substance: VALACYCLOVIR HYDROCHLORIDE
     Indication: GENITAL HERPES
     Dosage: 500 MILLIGRAM DAILY;
     Route: 048
     Dates: start: 20181012
  3. BENDAMUSTINE HYDROCHLORIDE. [Suspect]
     Active Substance: BENDAMUSTINE HYDROCHLORIDE
     Indication: B-CELL LYMPHOMA
     Dosage: 90 MG/M2X2/DAY,
     Route: 042
     Dates: start: 20181011, end: 20181012
  4. BENDAMUSTINE HYDROCHLORIDE. [Suspect]
     Active Substance: BENDAMUSTINE HYDROCHLORIDE
     Dosage: 60 MG/M2X2/DAY,
     Route: 042
     Dates: start: 20181213, end: 20181214
  5. FLUCONAZOLE. [Concomitant]
     Active Substance: FLUCONAZOLE
     Indication: OESOPHAGEAL CANDIDIASIS
     Dosage: 100 MILLIGRAM DAILY;
     Route: 048
     Dates: start: 20180105
  6. FEBUXOSTAT. [Concomitant]
     Active Substance: FEBUXOSTAT
     Indication: HYPERURICAEMIA
     Dosage: 20 MILLIGRAM DAILY;
     Route: 048
     Dates: start: 20181006
  7. PREDNISOLONE SODIUM SUCCINATE [Concomitant]
     Active Substance: PREDNISOLONE SODIUM SUCCINATE
     Dosage: 20MGX1/DAY AND 10MGX1/DAY
     Route: 042
     Dates: start: 20181016, end: 20181019
  8. PREDNISOLONE SODIUM SUCCINATE [Concomitant]
     Active Substance: PREDNISOLONE SODIUM SUCCINATE
     Dosage: 10 MILLIGRAM DAILY;
     Route: 042
     Dates: start: 20181024, end: 20181027
  9. TRIMETHOPRIM SULFAMETHOXAZOLE [Concomitant]
     Active Substance: SULFAMETHOXAZOLE\TRIMETHOPRIM
     Indication: CYSTITIS
     Dosage: 1 DOSAGE FORMS DAILY;
     Route: 048
     Dates: start: 20181005
  10. PREDNISOLONE SODIUM SUCCINATE [Concomitant]
     Active Substance: PREDNISOLONE SODIUM SUCCINATE
     Route: 042
     Dates: start: 20181020, end: 20181023
  11. PREDNISOLONE. [Concomitant]
     Active Substance: PREDNISOLONE
     Indication: B-CELL LYMPHOMA
     Dosage: 5 MILLIGRAM DAILY;
     Route: 048
     Dates: start: 20181028, end: 20181031
  12. FILGRASTIM [Concomitant]
     Active Substance: FILGRASTIM
     Indication: NEUTROPENIA
     Dosage: 75 MICROGRAM DAILY;
     Route: 058
     Dates: start: 20181029, end: 20181105
  13. HUMAN NORMAL IMMUNOGLOBULIN [Concomitant]
     Active Substance: HUMAN IMMUNOGLOBULIN G
     Indication: HYPOGAMMAGLOBULINAEMIA
     Dosage: 5 GRAM DAILY;
     Route: 065
  14. PREDNISOLONE SODIUM SUCCINATE [Concomitant]
     Active Substance: PREDNISOLONE SODIUM SUCCINATE
     Indication: B-CELL LYMPHOMA
     Route: 042
     Dates: start: 20181005, end: 20181015

REACTIONS (3)
  - Prescribed underdose [Unknown]
  - Pneumonia cytomegaloviral [Recovered/Resolved]
  - Lymphocyte count decreased [Not Recovered/Not Resolved]

NARRATIVE: CASE EVENT DATE: 20181011
